FAERS Safety Report 4940023-7 (Version None)
Quarter: 2006Q1

REPORT INFORMATION
  Report Type: 
  Country: None (occurrence: None)
  Receive Date: 20060310
  Receipt Date: 20060224
  Transmission Date: 20060701
  Serious: Yes (Other)
  Sender: FDA-Public Use
  Company Number: GB-BRISTOL-MYERS SQUIBB COMPANY-13295399

PATIENT
  Age: 32 Year
  Sex: Female

DRUGS (5)
  1. ABILIFY [Suspect]
     Indication: SCHIZOPHRENIA, PARANOID TYPE
     Route: 048
     Dates: start: 20060214
  2. VENLAFAXINE HCL [Concomitant]
     Indication: DEPRESSION
     Route: 048
  3. LORAZEPAM [Concomitant]
     Route: 048
  4. SALBUTAMOL [Concomitant]
     Route: 055
  5. ZOPICLONE [Concomitant]
     Route: 048
     Dates: start: 20060202

REACTIONS (4)
  - MEDICATION ERROR [None]
  - SPEECH DISORDER [None]
  - TONGUE DISORDER [None]
  - TREATMENT NONCOMPLIANCE [None]
